FAERS Safety Report 24066633 (Version 2)
Quarter: 2024Q3

REPORT INFORMATION
  Report Type: Report from Study
  Country: DE (occurrence: DE)
  Receive Date: 20240709
  Receipt Date: 20240912
  Transmission Date: 20241017
  Serious: No
  Sender: ROCHE
  Company Number: DE-ROCHE-2838056

PATIENT
  Age: 52 Year
  Sex: Female

DRUGS (12)
  1. OCREVUS [Suspect]
     Active Substance: OCRELIZUMAB
     Indication: Primary progressive multiple sclerosis
     Dosage: FIRST INITIAL INFUSION
     Route: 042
     Dates: start: 20200616
  2. OCREVUS [Suspect]
     Active Substance: OCRELIZUMAB
     Dosage: SECOND INITIAL INFUSION
     Route: 042
     Dates: start: 20200630
  3. OCREVUS [Suspect]
     Active Substance: OCRELIZUMAB
     Dosage: SUBSEQUENT DOSE 600 MG IN 183 DAYS AND 192 DAYS
     Route: 042
     Dates: start: 20210105
  4. OCREVUS [Suspect]
     Active Substance: OCRELIZUMAB
     Dosage: FOURTH MAINTENANCE DOSE
     Route: 042
     Dates: start: 20220718
  5. OCREVUS [Suspect]
     Active Substance: OCRELIZUMAB
     Dosage: 5TH MAINTENANCE DOSE
     Route: 042
     Dates: start: 20230117
  6. OCREVUS [Suspect]
     Active Substance: OCRELIZUMAB
     Dosage: 6TH MAINTENANCE DOSE
     Route: 042
     Dates: start: 20230728
  7. OCREVUS [Suspect]
     Active Substance: OCRELIZUMAB
     Route: 042
  8. OCREVUS [Suspect]
     Active Substance: OCRELIZUMAB
     Route: 042
  9. CHOLECALCIFEROL [Concomitant]
     Active Substance: CHOLECALCIFEROL
     Dosage: PAUSED
  10. SOLIFENACIN [Concomitant]
     Active Substance: SOLIFENACIN
     Route: 045
  11. MOVICOL [Concomitant]
     Active Substance: POLYETHYLENE GLYCOL 3350\POTASSIUM CHLORIDE\SODIUM BICARBONATE\SODIUM CHLORIDE
     Route: 045
  12. MIRABEGRON [Concomitant]
     Active Substance: MIRABEGRON

REACTIONS (17)
  - Fatigue [Recovered/Resolved]
  - Nasopharyngitis [Recovered/Resolved]
  - Gait disturbance [Recovered/Resolved]
  - Temperature intolerance [Recovered/Resolved]
  - Lower respiratory tract congestion [Recovered/Resolved]
  - Nasal dryness [Recovered/Resolved]
  - Urinary tract infection [Recovered/Resolved]
  - Cystitis [Recovered/Resolved]
  - Diarrhoea [Recovered/Resolved]
  - Tinnitus [Recovered/Resolved]
  - Lymphocyte count decreased [Recovered/Resolved]
  - Sensation of foreign body [Recovered/Resolved]
  - Headache [Recovered/Resolved]
  - Constipation [Recovered/Resolved]
  - COVID-19 [Recovered/Resolved]
  - Sensory disturbance [Recovering/Resolving]
  - Gait disturbance [Not Recovered/Not Resolved]

NARRATIVE: CASE EVENT DATE: 20200616
